FAERS Safety Report 8231977-4 (Version None)
Quarter: 2012Q1

REPORT INFORMATION
  Report Type: 
  Country: None (occurrence: None)
  Receive Date: 20120323
  Receipt Date: 20120315
  Transmission Date: 20120608
  Serious: Yes (Hospitalization)
  Sender: FDA-Public Use
  Company Number: US-BAYER-2011-119002

PATIENT
  Age: 27 Year
  Sex: Female
  Weight: 72.562 kg

DRUGS (2)
  1. IBUPROFEN (ADVIL) [Concomitant]
     Dosage: 2 DAYS A MONTH, UNK
  2. YASMIN [Suspect]
     Indication: CONTRACEPTION
     Dosage: UNK
     Dates: start: 20070801, end: 20071001

REACTIONS (7)
  - INJURY [None]
  - DEFORMITY [None]
  - ANHEDONIA [None]
  - DEEP VEIN THROMBOSIS [None]
  - PULMONARY EMBOLISM [None]
  - PAIN [None]
  - ANXIETY [None]
